FAERS Safety Report 7850093-4 (Version None)
Quarter: 2011Q4

REPORT INFORMATION
  Report Type: 
  Country: None (occurrence: None)
  Receive Date: 20111026
  Receipt Date: 20111018
  Transmission Date: 20120403
  Serious: Yes (Other)
  Sender: FDA-Public Use
  Company Number: FR-ASTELLAS-2010EU006841

PATIENT
  Sex: Male

DRUGS (2)
  1. TACROLIMUS [Suspect]
     Indication: DERMATITIS ATOPIC
     Dosage: 0.3 %, PRN
     Route: 065
     Dates: start: 20021115
  2. TACROLIMUS [Suspect]
     Dosage: 0.1 %, UNKNOWN/D
     Route: 065
     Dates: start: 20010101, end: 20030601

REACTIONS (2)
  - OFF LABEL USE [None]
  - LYMPHADENOPATHY [None]
